FAERS Safety Report 24242574 (Version 2)
Quarter: 2024Q4

REPORT INFORMATION
  Report Type: Spontaneous
  Country: AU (occurrence: AU)
  Receive Date: 20240823
  Receipt Date: 20241127
  Transmission Date: 20250115
  Serious: Yes (Other)
  Sender: CSL BEHRING
  Company Number: AU-BEH-2024176255

PATIENT
  Age: 15 Month
  Sex: Male
  Weight: 9 kg

DRUGS (2)
  1. HUMAN IMMUNOGLOBULIN G [Suspect]
     Active Substance: HUMAN IMMUNOGLOBULIN G
     Indication: Haemorrhage
     Dosage: 9 G
     Route: 042
     Dates: start: 20240721
  2. HUMAN IMMUNOGLOBULIN G [Suspect]
     Active Substance: HUMAN IMMUNOGLOBULIN G
     Indication: Platelet count decreased
     Dosage: 10 G
     Route: 065

REACTIONS (18)
  - Postictal paralysis [Unknown]
  - Thrombocytopenia [Unknown]
  - Haemorrhage [Unknown]
  - Body temperature increased [Unknown]
  - Transfusion reaction [Unknown]
  - Heart rate increased [Unknown]
  - Screaming [Unknown]
  - Aggression [Unknown]
  - Stress [Unknown]
  - Gait disturbance [Unknown]
  - Crying [Unknown]
  - Breath holding [Unknown]
  - Rhinovirus infection [Unknown]
  - Haemoglobin decreased [Unknown]
  - Blood calcium decreased [Unknown]
  - Blood magnesium decreased [Unknown]
  - Febrile convulsion [Unknown]
  - Pyrexia [Unknown]

NARRATIVE: CASE EVENT DATE: 20240721
